FAERS Safety Report 9376936 (Version 1)
Quarter: 2013Q3

REPORT INFORMATION
  Report Type: Report from Study
  Country: CA (occurrence: CA)
  Receive Date: 20130701
  Receipt Date: 20130701
  Transmission Date: 20140515
  Serious: Yes (Other)
  Sender: FDA-Public Use
  Company Number: PHHY2012CA036697

PATIENT
  Sex: Female

DRUGS (3)
  1. ACLASTA [Suspect]
     Indication: OSTEOPOROSIS
     Dosage: UNK UKN,
     Route: 042
     Dates: start: 20100615
  2. ACLASTA [Suspect]
     Dosage: UNK UKN, UNK
     Route: 042
     Dates: start: 20110616
  3. ACLASTA [Suspect]
     Dosage: UNK UKN, UNK
     Route: 042
     Dates: start: 20120426

REACTIONS (7)
  - Bipolar disorder [Unknown]
  - Disorientation [Unknown]
  - General physical health deterioration [Unknown]
  - Gait disturbance [Unknown]
  - Arthralgia [Unknown]
  - Joint swelling [Unknown]
  - Pain [Unknown]
